FAERS Safety Report 18138721 (Version 1)
Quarter: 2020Q3

REPORT INFORMATION
  Report Type: Spontaneous
  Country: US (occurrence: US)
  Receive Date: 20200811
  Receipt Date: 20200811
  Transmission Date: 20201103
  Serious: No
  Sender: FDA-Public Use
  Company Number: None

PATIENT
  Age: 29 Year
  Sex: Female
  Weight: 58.5 kg

DRUGS (1)
  1. ETONOGESTREL/ETHINYL ESTRADIOL [Suspect]
     Active Substance: ETHINYL ESTRADIOL\ETONOGESTREL
     Indication: CONTRACEPTION
     Dosage: ?          QUANTITY:1 EACH;OTHER FREQUENCY:ONE EVERY 3 WEEKS;?
     Route: 067
     Dates: start: 20200505, end: 20200810

REACTIONS (5)
  - Vulvovaginal discomfort [None]
  - Vaginal haemorrhage [None]
  - Dyspareunia [None]
  - Product substitution issue [None]
  - Complication associated with device [None]

NARRATIVE: CASE EVENT DATE: 20200505
